FAERS Safety Report 24458244 (Version 1)
Quarter: 2024Q4

REPORT INFORMATION
  Report Type: Spontaneous
  Country: US (occurrence: US)
  Receive Date: 20241018
  Receipt Date: 20241018
  Transmission Date: 20250115
  Serious: Yes (Other)
  Sender: BRISTOL-MYERS SQUIBB COMPANY
  Company Number: US-BRISTOL-MYERS SQUIBB COMPANY-2024-161763

PATIENT
  Age: 76 Year
  Sex: Female

DRUGS (2)
  1. KRAZATI [Suspect]
     Active Substance: ADAGRASIB
     Indication: Product used for unknown indication
     Dosage: TAKE 3 TABLETS BY MOUTH; FREQ : TWICE A DAY
     Route: 048
  2. KRAZATI [Suspect]
     Active Substance: ADAGRASIB
     Dosage: 200MG BID
     Route: 048

REACTIONS (2)
  - Renal impairment [Unknown]
  - Prescribed underdose [Unknown]

NARRATIVE: CASE EVENT DATE: 20241010
